FAERS Safety Report 9843874 (Version 1)
Quarter: 2013Q4

REPORT INFORMATION
  Report Type: Spontaneous
  Country: US (occurrence: None)
  Receive Date: 20131223
  Receipt Date: 20131223
  Transmission Date: 20140711
  Serious: Yes (Other)
  Sender: FDA-Public Use
  Company Number: 1000048393

PATIENT
  Age: 77 Year
  Sex: Female

DRUGS (7)
  1. LINZESS (LINACLOTIDE) (CAPSULES) [Suspect]
     Indication: IMPAIRED GASTRIC EMPTYING
     Route: 048
     Dates: start: 201306, end: 201307
  2. CARDIZEM (DILTIAZEM) (UNKNOWN) (DILTIAZEM) [Concomitant]
  3. FLECAINIDE [Concomitant]
  4. SYNTHROID (LEVOTHYROXINE) [Concomitant]
  5. PANTOPRAZOLE [Concomitant]
  6. ASPIRIN (ACETYLSALICYLIC ACID) [Concomitant]
  7. WARFARIN [Concomitant]

REACTIONS (4)
  - Nausea [None]
  - Vomiting [None]
  - Abdominal discomfort [None]
  - Off label use [None]
